FAERS Safety Report 23511717 (Version 1)
Quarter: 2024Q1

REPORT INFORMATION
  Report Type: Spontaneous
  Country: US (occurrence: US)
  Receive Date: 20240212
  Receipt Date: 20240212
  Transmission Date: 20240410
  Serious: No
  Sender: FDA-Public Use
  Company Number: US-Coheurs Biosciences, Inc.-2024-COH-US000026

PATIENT

DRUGS (5)
  1. CIMERLI [Suspect]
     Active Substance: RANIBIZUMAB-EQRN
     Indication: Neovascular age-related macular degeneration
     Dosage: 0.5 MG, EVERY 8 WEEKS
     Dates: start: 20231116, end: 20231116
  2. CIMERLI [Suspect]
     Active Substance: RANIBIZUMAB-EQRN
     Dosage: 0.5 MG, EVER 8 WEEKS
     Dates: start: 20231211, end: 20231211
  3. ELIQUIS [Concomitant]
     Active Substance: APIXABAN
     Dosage: UNK
  4. LIPITOR [Concomitant]
     Active Substance: ATORVASTATIN CALCIUM
  5. FENOFIBRATE [Concomitant]
     Active Substance: FENOFIBRATE
     Dosage: UNK

REACTIONS (2)
  - Upper respiratory tract infection [Recovered/Resolved]
  - Off label use [Unknown]

NARRATIVE: CASE EVENT DATE: 20231116
